FAERS Safety Report 7403161-5 (Version None)
Quarter: 2011Q2

REPORT INFORMATION
  Report Type: 
  Country: None (occurrence: None)
  Receive Date: 20110408
  Receipt Date: 20110407
  Transmission Date: 20111010
  Serious: Yes (Other)
  Sender: FDA-Public Use
  Company Number: JP-PFIZER INC-2011077235

PATIENT
  Age: 82 Year
  Sex: Male

DRUGS (3)
  1. BASEN [Concomitant]
  2. LIPITOR [Suspect]
     Dosage: 10 MG, 1X/DAY
     Route: 048
     Dates: end: 20110301
  3. NU LOTAN [Suspect]
     Dosage: 25 MG, UNK
     Route: 048
     Dates: end: 20110301

REACTIONS (1)
  - HYPOGLYCAEMIA [None]
